FAERS Safety Report 5350905-2 (Version None)
Quarter: 2007Q2

REPORT INFORMATION
  Report Type: 
  Country: None (occurrence: None)
  Receive Date: 20070606
  Receipt Date: 20070606
  Transmission Date: 20071010
  Serious: Yes (Other)
  Sender: FDA-Public Use
  Company Number: None

PATIENT
  Age: 75 Year
  Sex: Female

DRUGS (8)
  1. PHOSPHOSODA FLAVOR NOT SPECIFIED [Suspect]
     Indication: COLONOSCOPY
     Dosage: 3 UNK; PO
     Route: 048
     Dates: start: 20020505, end: 20020505
  2. SYNTHROID [Concomitant]
  3. ATENOLOL [Concomitant]
  4. ASPIRIN [Concomitant]
  5. VITAMIN B-12 [Concomitant]
  6. EVISTA [Concomitant]
  7. VIOXX [Concomitant]
  8. NORVASC [Concomitant]

REACTIONS (1)
  - NEPHROPATHY [None]
